FAERS Safety Report 9364543 (Version 7)
Quarter: 2014Q2

REPORT INFORMATION
  Report Type: Spontaneous
  Country: JP (occurrence: JP)
  Receive Date: 20130624
  Receipt Date: 20140624
  Transmission Date: 20141212
  Serious: Yes (Life-Threatening, Other)
  Sender: FDA-Public Use
  Company Number: JP-OTSUKA-JP-2013-12243

PATIENT
  Age: 8 Month
  Sex: Female
  Weight: 7.9 kg

DRUGS (15)
  1. METHOTREXATE [Concomitant]
     Dosage: 2.8 MG MILLIGRAM(S), QD
     Route: 041
     Dates: start: 20130319, end: 20130319
  2. BUSULFEX [Suspect]
     Indication: CORD BLOOD TRANSPLANT THERAPY
     Dosage: 4.5 MG MILLIGRAM(S), QD
     Route: 041
     Dates: start: 20120227, end: 20120227
  3. BUSULFEX [Suspect]
     Dosage: 7.5 MG MILLIGRAM(S), QID
     Route: 041
     Dates: start: 20120305, end: 20120308
  4. BUSULFEX [Suspect]
     Dosage: 8.0 MG MILLIGRAM(S), QID
     Route: 041
     Dates: start: 20120308, end: 20120309
  5. RED BLOOD CELLS, CONCENTRATED [Concomitant]
     Dosage: 1 U BETWEEN 27-FEB-2012 AND 17-MAR-2012
     Route: 041
  6. PLATELETS, CONCENTRATED [Concomitant]
     Dosage: 20 U BETWEEN 27-FEB-2012 AND 17-MAR-2012
     Route: 041
  7. VENOGLOBULIN-IH [Concomitant]
     Indication: HYPOGAMMAGLOBULINAEMIA
     Dosage: 1000 MG MILLIGRAM(S), QD
     Route: 041
     Dates: start: 20120304, end: 20120307
  8. ETOPOSIDE [Concomitant]
     Indication: CORD BLOOD TRANSPLANT THERAPY
     Dosage: 480 MG MILLIGRAM(S), QD
     Route: 041
     Dates: start: 20120309, end: 20120309
  9. MEROPEN [Concomitant]
     Indication: PYREXIA
     Dosage: 300 MG MILLIGRAM(S), TID
     Route: 041
     Dates: start: 20120309, end: 20120312
  10. ENDOXAN [Concomitant]
     Indication: CORD BLOOD TRANSPLANT THERAPY
     Dosage: 480 MG MILLIGRAM(S), QD
     Route: 041
     Dates: start: 20120310, end: 20120311
  11. ITRIZOLE [Concomitant]
     Indication: INFECTION PROPHYLAXIS
     Dosage: 30 MG MILLIGRAM(S), QD
     Route: 041
     Dates: start: 20120311
  12. PROGRAF [Concomitant]
     Indication: IMMUNOSUPPRESSION
     Dosage: 0.12 MG MILLIGRAM(S), DAILY DOSE
     Route: 041
     Dates: start: 20120312
  13. PENTCILLIN [Concomitant]
     Indication: INFECTION PROPHYLAXIS
     Dosage: 400 MG MILLIGRAM(S), BID
     Route: 041
     Dates: start: 20120313, end: 2012
  14. METHOTREXATE [Concomitant]
     Indication: PROPHYLAXIS AGAINST GRAFT VERSUS HOST DISEASE
     Dosage: 2.8 MG MILLIGRAM(S), QD
     Route: 041
     Dates: start: 20120314, end: 20120314
  15. METHOTREXATE [Concomitant]
     Dosage: 2.8 MG MILLIGRAM(S), QD
     Route: 041
     Dates: start: 20120316, end: 20120316

REACTIONS (5)
  - Hepatic failure [Recovering/Resolving]
  - Ascites [Recovering/Resolving]
  - Platelet count decreased [Recovered/Resolved]
  - Venoocclusive liver disease [Recovering/Resolving]
  - Pulmonary haemorrhage [Recovered/Resolved]
